FAERS Safety Report 15631442 (Version 1)
Quarter: 2018Q4

REPORT INFORMATION
  Report Type: Report from Study
  Country: IT (occurrence: IT)
  Receive Date: 20181119
  Receipt Date: 20181119
  Transmission Date: 20190205
  Serious: Yes (Other)
  Sender: FDA-Public Use
  Company Number: IT-ROCHE-2069781

PATIENT

DRUGS (4)
  1. SULFAMETHOXAZOLE/TRIMETHOPRIM [Concomitant]
     Active Substance: SULFAMETHOXAZOLE\TRIMETHOPRIM
     Indication: PROPHYLAXIS
     Dosage: TWICE A WEEK
     Route: 065
  2. RITUXIMAB. [Suspect]
     Active Substance: RITUXIMAB
     Indication: SPLENIC MARGINAL ZONE LYMPHOMA
     Dosage: ON DAY 1
     Route: 042
  3. BENDAMUSTINE [Suspect]
     Active Substance: BENDAMUSTINE
     Indication: SPLENIC MARGINAL ZONE LYMPHOMA
     Dosage: DAY 1-2
     Route: 065
  4. VALACICLOVIR [Concomitant]
     Active Substance: VALACYCLOVIR HYDROCHLORIDE
     Indication: PROPHYLAXIS
     Route: 065

REACTIONS (28)
  - Pyrexia [Unknown]
  - Febrile neutropenia [Unknown]
  - Pleural effusion [Unknown]
  - Leukopenia [Unknown]
  - Thrombocytopenia [Unknown]
  - Infusion related reaction [Unknown]
  - Hypotension [Unknown]
  - Neutropenia [Unknown]
  - Nausea [Unknown]
  - Stomatitis [Unknown]
  - Fatigue [Unknown]
  - Lung infection [Unknown]
  - Erysipelas [Unknown]
  - Rash maculo-papular [Unknown]
  - Renal cancer [Unknown]
  - Anaemia [Unknown]
  - Abdominal infection [Unknown]
  - Tumour lysis syndrome [Unknown]
  - Neurofibrosarcoma [Unknown]
  - Constipation [Unknown]
  - Cardiac disorder [Unknown]
  - Vomiting [Unknown]
  - Spleen disorder [Unknown]
  - Urinary tract obstruction [Unknown]
  - Pneumonitis [Unknown]
  - Diabetes mellitus inadequate control [Unknown]
  - Disseminated intravascular coagulation [Unknown]
  - Pancytopenia [Unknown]
